FAERS Safety Report 9331371 (Version 1)
Quarter: 2013Q2

REPORT INFORMATION
  Report Type: Spontaneous
  Country: FR (occurrence: FR)
  Receive Date: 20130605
  Receipt Date: 20130605
  Transmission Date: 20140414
  Serious: Yes (Hospitalization, Other)
  Sender: FDA-Public Use
  Company Number: FR-009507513-1305FRA015728

PATIENT
  Age: 32 Year
  Sex: Female

DRUGS (3)
  1. IMPLANON [Suspect]
     Indication: CONTRACEPTION
     Dosage: UNK
     Route: 058
     Dates: start: 20040216, end: 20051219
  2. RIFATER [Concomitant]
     Indication: PULMONARY TUBERCULOSIS
     Dosage: 4 DF, QD
     Route: 048
     Dates: start: 20050802, end: 20050906
  3. RIFINAH [Interacting]
     Indication: PULMONARY TUBERCULOSIS
     Dosage: 2 DF, QD
     Route: 048
     Dates: start: 20050906, end: 200512

REACTIONS (4)
  - Drug interaction [Recovered/Resolved with Sequelae]
  - Abortion spontaneous [Recovered/Resolved with Sequelae]
  - Unintended pregnancy [Recovered/Resolved with Sequelae]
  - Drug ineffective [Recovered/Resolved with Sequelae]
